FAERS Safety Report 7902065-9 (Version None)
Quarter: 2011Q4

REPORT INFORMATION
  Report Type: 
  Country: None (occurrence: None)
  Receive Date: 20111108
  Receipt Date: 20111031
  Transmission Date: 20120403
  Serious: Yes (Other)
  Sender: FDA-Public Use
  Company Number: KR-GLAXOSMITHKLINE-B0761143A

PATIENT
  Age: 4 Year
  Sex: Male

DRUGS (5)
  1. KETOTIFEN FUMARATE [Concomitant]
  2. FLUTICASONE PROPIONATE [Suspect]
     Indication: ASTHMA
     Route: 065
  3. LORATADINE [Concomitant]
  4. LEVODROPROPIZINE [Concomitant]
  5. MONTELUKAST SODIUM [Concomitant]

REACTIONS (2)
  - SOMNOLENCE [None]
  - AGGRESSION [None]
